FAERS Safety Report 7710049-9 (Version None)
Quarter: 2011Q3

REPORT INFORMATION
  Report Type: 
  Country: None (occurrence: None)
  Receive Date: 20110825
  Receipt Date: 20110819
  Transmission Date: 20111222
  Serious: No
  Sender: FDA-Public Use
  Company Number: PHHY2011JP70954

PATIENT
  Sex: Female
  Weight: 35 kg

DRUGS (1)
  1. SOMATROPIN RDNA [Suspect]
     Indication: GROWTH HORMONE DEFICIENCY
     Dosage: 1.2 MG/DAY
     Route: 058
     Dates: start: 20100616

REACTIONS (1)
  - LIVER FUNCTION TEST ABNORMAL [None]
